FAERS Safety Report 20090792 (Version 5)
Quarter: 2025Q3

REPORT INFORMATION
  Report Type: Report from Study
  Country: US (occurrence: US)
  Receive Date: 20211119
  Receipt Date: 20250728
  Transmission Date: 20251021
  Serious: Yes (Other)
  Sender: TAKEDA
  Company Number: US-TAKEDA-2021TUS034826

PATIENT
  Sex: Female

DRUGS (26)
  1. PONATINIB [Suspect]
     Active Substance: PONATINIB
     Indication: Chronic myeloid leukaemia
     Dosage: 45 MILLIGRAM, QD
  2. PONATINIB [Suspect]
     Active Substance: PONATINIB
     Dosage: 15 MILLIGRAM, QD
  3. PONATINIB [Suspect]
     Active Substance: PONATINIB
     Dosage: 30 MILLIGRAM, QD
  4. ZINC [Concomitant]
     Active Substance: ZINC
  5. VITAMIN D [Concomitant]
     Active Substance: VITAMIN D NOS
  6. OMEPRAZOLE [Concomitant]
     Active Substance: OMEPRAZOLE
  7. MORPHINE SULFATE [Concomitant]
     Active Substance: MORPHINE SULFATE
  8. OXYCODONE HYDROCHLORIDE [Concomitant]
     Active Substance: OXYCODONE HYDROCHLORIDE
  9. IBUPROFEN [Concomitant]
     Active Substance: IBUPROFEN
  10. EXCEDRIN [Concomitant]
     Active Substance: ACETAMINOPHEN\ASPIRIN\CAFFEINE
  11. ATENOLOL [Concomitant]
     Active Substance: ATENOLOL
  12. SIMVASTATIN [Concomitant]
     Active Substance: SIMVASTATIN
  13. LEVOTHYROXINE SODIUM [Concomitant]
     Active Substance: LEVOTHYROXINE SODIUM
  14. CYCLOBENZAPRINE HYDROCHLORIDE [Concomitant]
     Active Substance: CYCLOBENZAPRINE HYDROCHLORIDE
  15. METFORMIN HYDROCHLORIDE [Concomitant]
     Active Substance: METFORMIN HYDROCHLORIDE
  16. GLIPIZIDE [Concomitant]
     Active Substance: GLIPIZIDE
  17. SERTRALINE HYDROCHLORIDE [Concomitant]
     Active Substance: SERTRALINE HYDROCHLORIDE
  18. OXYBUTYNIN CHLORIDE [Concomitant]
     Active Substance: OXYBUTYNIN CHLORIDE
  19. ATORVASTATIN CALCIUM [Concomitant]
     Active Substance: ATORVASTATIN CALCIUM
  20. METOPROLOL [Concomitant]
     Active Substance: METOPROLOL
  21. CLOPIDOGREL [Concomitant]
     Active Substance: CLOPIDOGREL BISULFATE
  22. LISINOPRIL [Concomitant]
     Active Substance: LISINOPRIL
  23. HYDROCHLOROTHIAZIDE [Concomitant]
     Active Substance: HYDROCHLOROTHIAZIDE
  24. FISH OIL [Concomitant]
     Active Substance: FISH OIL
  25. DILAUDID [Concomitant]
     Active Substance: HYDROMORPHONE HYDROCHLORIDE
  26. PRASUGREL [Concomitant]
     Active Substance: PRASUGREL

REACTIONS (12)
  - Neuropathy peripheral [Unknown]
  - Thrombosis [Unknown]
  - Cardiac failure congestive [Unknown]
  - Atrioventricular block complete [Unknown]
  - Weight decreased [Unknown]
  - Fatigue [Unknown]
  - Coronary artery disease [Unknown]
  - Asthenia [Unknown]
  - Arteriosclerosis [Unknown]
  - Cardiac disorder [Unknown]
  - Skin discolouration [Unknown]
  - Product dose omission issue [Unknown]
